FAERS Safety Report 19728871 (Version 1)
Quarter: 2021Q3

REPORT INFORMATION
  Report Type: Spontaneous
  Country: FR (occurrence: FR)
  Receive Date: 20210820
  Receipt Date: 20210820
  Transmission Date: 20211014
  Serious: Yes (Other)
  Sender: FDA-Public Use
  Company Number: FR-MYLANLABS-2021M1052969

PATIENT
  Age: 81 Year
  Sex: Male

DRUGS (14)
  1. VANCOMYCINE SANDOZ [Suspect]
     Active Substance: VANCOMYCIN
     Indication: INDUCTION OF ANAESTHESIA
     Dosage: 50 MILLIGRAM, TOTAL
     Route: 042
     Dates: start: 20210222, end: 20210222
  2. PERFALGAN [Suspect]
     Active Substance: ACETAMINOPHEN
     Indication: PRODUCT USED FOR UNKNOWN INDICATION
     Dosage: 1 GRAM, TOTAL
     Route: 042
     Dates: start: 20210222, end: 20210222
  3. NITRONAL [Suspect]
     Active Substance: NITROGLYCERIN
     Indication: PRODUCT USED FOR UNKNOWN INDICATION
     Dosage: 600 MICROGRAM, TOTAL
     Route: 042
     Dates: start: 20210222, end: 20210222
  4. GELOFUSINE                         /00523001/ [Suspect]
     Active Substance: POLYGELINE\POTASSIUM CHLORIDE\SODIUM CHLORIDE
     Indication: PRODUCT USED FOR UNKNOWN INDICATION
     Dosage: 500 MILLIGRAM, TOTAL
     Route: 042
     Dates: start: 20210222, end: 20210222
  5. BIOCODEX SUXAMETHONIUM [Suspect]
     Active Substance: SUCCINYLCHOLINE CHLORIDE
     Indication: INDUCTION OF ANAESTHESIA
     Dosage: 80 MILLIGRAM, TOTAL
     Route: 042
     Dates: start: 20210222, end: 20210222
  6. SUFENTANIL [Concomitant]
     Active Substance: SUFENTANIL
     Dosage: UNK
  7. TARKA [Concomitant]
     Active Substance: TRANDOLAPRIL\VERAPAMIL HYDROCHLORIDE
     Dosage: UNK
  8. CLOTTAFACT [Suspect]
     Active Substance: FIBRINOGEN HUMAN
     Indication: PRODUCT USED FOR UNKNOWN INDICATION
     Dosage: 3 GRAM, TOTAL
     Route: 042
     Dates: start: 20210222, end: 20210222
  9. CONTRAMAL [Suspect]
     Active Substance: TRAMADOL HYDROCHLORIDE
     Indication: PRODUCT USED FOR UNKNOWN INDICATION
     Dosage: 100 MILLIGRAM, TOTAL
     Route: 042
     Dates: start: 20210222, end: 20210222
  10. NORADRENALINE MYLAN [Suspect]
     Active Substance: NOREPINEPHRINE\NOREPINEPHRINE BITARTRATE
     Indication: PRODUCT USED FOR UNKNOWN INDICATION
     Dosage: 0.82 MILLIGRAM, QD
     Route: 042
     Dates: start: 20210222, end: 20210222
  11. CHLORURE DE CALCIUM [Suspect]
     Active Substance: CALCIUM CHLORIDE
     Indication: PRODUCT USED FOR UNKNOWN INDICATION
     Dosage: 2 GRAM, TOTAL
     Route: 042
     Dates: start: 20210222, end: 20210222
  12. ATRACURIUM HOSPIRA [Suspect]
     Active Substance: ATRACURIUM BESYLATE
     Indication: INDUCTION OF ANAESTHESIA
     Dosage: 150 MILLIGRAM, TOTAL
     Route: 042
     Dates: start: 20210222, end: 20210222
  13. ETOMIDATE LIPURO [Suspect]
     Active Substance: ETOMIDATE
     Indication: INDUCTION OF ANAESTHESIA
     Dosage: 40 MILLIGRAM, TOTAL
     Route: 042
     Dates: start: 20210222, end: 20210222
  14. HEPARINE SODIQUE [Suspect]
     Active Substance: HEPARIN SODIUM
     Indication: PRODUCT USED FOR UNKNOWN INDICATION
     Dosage: 3000 INTERNATIONAL UNIT, TOTAL
     Route: 042
     Dates: start: 20210222, end: 20210222

REACTIONS (1)
  - Erythema [Recovered/Resolved]

NARRATIVE: CASE EVENT DATE: 20210222
